FAERS Safety Report 12076273 (Version 3)
Quarter: 2016Q1

REPORT INFORMATION
  Report Type: Report from Study
  Country: GB (occurrence: GB)
  Receive Date: 20160215
  Receipt Date: 20160326
  Transmission Date: 20160526
  Serious: Yes (Other)
  Sender: FDA-Public Use
  Company Number: GB-BRISTOL-MYERS SQUIBB COMPANY-BMS-2016-009645

PATIENT
  Age: 73 Year
  Sex: Male
  Weight: 71 kg

DRUGS (4)
  1. NIVOLUMAB [Suspect]
     Active Substance: NIVOLUMAB
     Indication: NON-SMALL CELL LUNG CANCER
     Dosage: 203 MG, UNK
     Route: 065
     Dates: start: 20151209, end: 20151209
  2. NIVOLUMAB [Suspect]
     Active Substance: NIVOLUMAB
     Dosage: 202 MG, UNK
     Route: 065
     Dates: start: 20160122, end: 20160122
  3. NIVOLUMAB [Suspect]
     Active Substance: NIVOLUMAB
     Dosage: 201 MG, UNK
     Route: 065
     Dates: start: 20151224, end: 20151224
  4. NIVOLUMAB [Suspect]
     Active Substance: NIVOLUMAB
     Dosage: 202 MG, UNK
     Route: 065
     Dates: start: 20160108, end: 20160108

REACTIONS (1)
  - Hyperkalaemia [Recovered/Resolved]

NARRATIVE: CASE EVENT DATE: 20160129
